FAERS Safety Report 4451768-X (Version None)
Quarter: 2004Q3

REPORT INFORMATION
  Report Type: 
  Country: None (occurrence: None)
  Receive Date: 20040812
  Receipt Date: 20040504
  Transmission Date: 20050211
  Serious: No
  Sender: FDA-Public Use
  Company Number: USA040566726

PATIENT
  Age: 64 Year
  Sex: Male

DRUGS (5)
  1. CIALIS [Suspect]
     Indication: ERECTILE DYSFUNCTION
     Dosage: 20 MG
     Dates: start: 20040201
  2. METOPROLOL [Concomitant]
  3. ATROVENT [Concomitant]
  4. FLOVENT [Concomitant]
  5. SEREVENT [Concomitant]

REACTIONS (3)
  - ANORGASMIA [None]
  - EJACULATION DELAYED [None]
  - EJACULATION DISORDER [None]
